FAERS Safety Report 9127106 (Version 1)
Quarter: 2013Q1

REPORT INFORMATION
  Report Type: Spontaneous
  Country: US (occurrence: US)
  Receive Date: 20130122
  Receipt Date: 20130122
  Transmission Date: 20140127
  Serious: No
  Sender: FDA-Public Use
  Company Number: US-MYLANLABS-2012S1005754

PATIENT
  Sex: Female

DRUGS (1)
  1. LETROZOLE [Suspect]
     Route: 048

REACTIONS (1)
  - Red blood cell abnormality [Not Recovered/Not Resolved]
